FAERS Safety Report 10380362 (Version 1)
Quarter: 2014Q1

REPORT INFORMATION
  Report Type: Spontaneous
  Country: US (occurrence: None)
  Receive Date: 20140306
  Receipt Date: 20140306
  Transmission Date: 20141002
  Serious: Yes (Other)
  Sender: FDA-Public Use
  Company Number: 163-21880-13021252

PATIENT
  Age: 72 Year
  Sex: Female
  Weight: 65.77 kg

DRUGS (5)
  1. REVLIMID [Suspect]
     Indication: PLASMA CELL MYELOMA
     Route: 048
     Dates: start: 200906
  2. LYRICA [Suspect]
     Indication: PRODUCT USED FOR UNKNOWN INDICATION
  3. ZOMETA (ZOLEDRONIC ACID) [Concomitant]
  4. PROCRIT (ERYTHROPOIETIN) (UNKNOWN) [Concomitant]
  5. NAPROSYN (NAPROXEN) [Concomitant]

REACTIONS (2)
  - Drug intolerance [None]
  - Dizziness [None]
